FAERS Safety Report 9014277 (Version 2)
Quarter: 2013Q1

REPORT INFORMATION
  Report Type: Spontaneous
  Country: US (occurrence: US)
  Receive Date: 20130115
  Receipt Date: 20130211
  Transmission Date: 20140127
  Serious: No
  Sender: FDA-Public Use
  Company Number: US-PFIZER INC-2013015034

PATIENT
  Age: 13 Year
  Sex: Male
  Weight: 50.79 kg

DRUGS (3)
  1. GENOTROPIN [Suspect]
     Indication: GROWTH RETARDATION
     Dosage: 2.4 MG, ONCE A DAY FOR SIX DAYS IN A WEEK
     Dates: start: 201209
  2. SINGULAIR [Concomitant]
     Indication: ASTHMA
     Dosage: 5 MG, 1X/DAY
  3. ALVESCO [Concomitant]
     Indication: ASTHMA
     Dosage: UNK

REACTIONS (1)
  - Burning sensation [Unknown]
